FAERS Safety Report 4867762-0 (Version None)
Quarter: 2005Q4

REPORT INFORMATION
  Report Type: 
  Country: None (occurrence: None)
  Receive Date: 20051228
  Receipt Date: 20051216
  Transmission Date: 20060501
  Serious: Yes (Other)
  Sender: FDA-Public Use
  Company Number: US-KINGPHARMUSA00001-K200501613

PATIENT
  Age: 32 Year
  Sex: Female
  Weight: 62 kg

DRUGS (12)
  1. LEVOXYL [Suspect]
     Indication: THYROID DISORDER
     Route: 048
     Dates: start: 20010101, end: 20040701
  2. ABILIFY [Suspect]
     Dates: start: 20010101, end: 20040701
  3. WELLBUTRIN [Suspect]
     Dosage: 150 MG, TID
     Dates: start: 20010101, end: 20040701
  4. TRILEPTAL [Suspect]
     Dosage: 2000 MG, UNK
     Dates: start: 20010101, end: 20040701
  5. LITHIUM [Suspect]
     Dosage: 1200 MG, UNK
     Dates: start: 20010101, end: 20040701
  6. ZYPREXA [Suspect]
     Dosage: UNK, PRN
     Dates: start: 20010101, end: 20040701
  7. THORAZINE [Suspect]
     Dosage: UNK, PRN
     Dates: start: 20010101, end: 20040701
  8. CLOMIPRAMINE HCL [Suspect]
     Dates: start: 20010101, end: 20040701
  9. RISPERIDONE [Suspect]
     Dates: start: 20010101, end: 20040701
  10. EFFEXOR [Suspect]
     Dates: start: 20010101, end: 20040701
  11. PROZAC [Suspect]
     Dates: start: 20010101, end: 20040701
  12. DEPAKENE [Suspect]
     Dates: start: 20010101, end: 20040701

REACTIONS (27)
  - ALOPECIA [None]
  - COUGH [None]
  - DEHYDRATION [None]
  - DIZZINESS [None]
  - DYSPHONIA [None]
  - HEARING IMPAIRED [None]
  - HIATUS HERNIA [None]
  - LETHARGY [None]
  - MEMORY IMPAIRMENT [None]
  - NASAL CONGESTION [None]
  - NEPHROLITHIASIS [None]
  - OSTEOARTHRITIS [None]
  - PYREXIA [None]
  - RENAL DISORDER [None]
  - RENAL IMPAIRMENT [None]
  - RHEUMATOID ARTHRITIS [None]
  - RHINORRHOEA [None]
  - SEDATION [None]
  - SOMNOLENCE [None]
  - SUICIDE ATTEMPT [None]
  - ULCER [None]
  - UNEVALUABLE EVENT [None]
  - VISION BLURRED [None]
  - VOMITING [None]
  - WEIGHT DECREASED [None]
  - WEIGHT INCREASED [None]
  - YELLOW SKIN [None]
